FAERS Safety Report 11092558 (Version 1)
Quarter: 2015Q2

REPORT INFORMATION
  Report Type: Spontaneous
  Country: JP (occurrence: None)
  Receive Date: 20150504
  Receipt Date: 20150504
  Transmission Date: 20150821
  Serious: Yes (Other)
  Sender: FDA-Public Use
  Company Number: JP-2015VAL000290

PATIENT
  Age: 50 Year
  Sex: Female

DRUGS (7)
  1. TECIPUL (SETIPTILINE MALEATE) TABLET [Concomitant]
  2. SOLANAX (ALPRAZOLAM) TABLET [Concomitant]
  3. PARLODEL [Suspect]
     Active Substance: BROMOCRIPTINE MESYLATE
     Indication: PRODUCT USED FOR UNKNOWN INDICATION
     Route: 048
     Dates: start: 20150317
  4. AKINETON /00079502/ (BIPERIDEN HYDROCHLORIDE) [Concomitant]
  5. TERNELIN (TIZANIDINE HYDROCHLORIDE) TABLET [Suspect]
     Active Substance: TIZANIDINE
     Indication: PRODUCT USED FOR UNKNOWN INDICATION
     Dates: start: 20150321
  6. CERCINE (DIAZEPAM) [Concomitant]
  7. ROHYPNOL (FLUNITRAZEPAM) [Concomitant]
     Active Substance: FLUNITRAZEPAM

REACTIONS (11)
  - Tremor [None]
  - Restless legs syndrome [None]
  - Dyspnoea [None]
  - Fatigue [None]
  - Angiopathy [None]
  - Gait disturbance [None]
  - Wrong technique in drug usage process [None]
  - Sleep disorder [None]
  - Apnoea [None]
  - Muscle rigidity [None]
  - Hyperventilation [None]

NARRATIVE: CASE EVENT DATE: 20150317
